FAERS Safety Report 10982288 (Version 1)
Quarter: 2015Q2

REPORT INFORMATION
  Report Type: Spontaneous
  Country: JP (occurrence: JP)
  Receive Date: 20150403
  Receipt Date: 20150403
  Transmission Date: 20150821
  Serious: Yes (Death, Other)
  Sender: FDA-Public Use
  Company Number: JP-ACCORD-029721

PATIENT
  Age: 40 Year
  Sex: Female

DRUGS (5)
  1. DOCETAXEL. [Suspect]
     Active Substance: DOCETAXEL
     Indication: CERVIX CARCINOMA STAGE II
     Dosage: SEVEN CYCLES. ?AS THIRD-LINE CHEMOTHERAPY.
  2. CISPLATIN. [Suspect]
     Active Substance: CISPLATIN
     Indication: CERVIX CARCINOMA STAGE II
     Dosage: FOLLOWED BY SIX CYCLES.
  3. IRINOTECAN [Suspect]
     Active Substance: IRINOTECAN
     Indication: CERVIX CARCINOMA STAGE II
     Dosage: ONE CYCLE.?AGAIN RECEIVED THREE CYCLES OF IRINOTECAN 160 MG/M2.
  4. NEDAPLATIN [Suspect]
     Active Substance: NEDAPLATIN
     Indication: CERVIX CARCINOMA STAGE II
     Dosage: ONE CYCLE.?AGAIN RECEIVED THREE CYCLES OF NEDAPLATIN 80 MG/M2.
  5. CARBOPLATIN. [Suspect]
     Active Substance: CARBOPLATIN
     Indication: CERVIX CARCINOMA STAGE II
     Dosage: SEVEN CYCLES CARBOPLATIN WITH AUC AT 5 MG/ML.?AS THIRD-LINE CHEMOTHERAPY.

REACTIONS (4)
  - No therapeutic response [Unknown]
  - Multi-organ failure [Unknown]
  - Infection [Fatal]
  - Acute myeloid leukaemia [Fatal]
